FAERS Safety Report 23651894 (Version 1)
Quarter: 2024Q1

REPORT INFORMATION
  Report Type: Spontaneous
  Country: ES (occurrence: ES)
  Receive Date: 20240320
  Receipt Date: 20240320
  Transmission Date: 20240410
  Serious: Yes (Hospitalization, Other)
  Sender: FDA-Public Use
  Company Number: ES-AEMPS-1494895

PATIENT
  Age: 23 Year
  Sex: Female

DRUGS (3)
  1. IBUPROFEN [Suspect]
     Active Substance: IBUPROFEN
     Indication: Procedural pain
     Dosage: 600 MILLIGRAM (1 TOTAL)
     Route: 048
     Dates: start: 20230825, end: 20230825
  2. METAMIZOL [Suspect]
     Active Substance: METAMIZOLE SODIUM
     Indication: Procedural pain
     Dosage: 575 MILLIGRAM, ONCE A DAY
     Route: 048
     Dates: start: 20230825, end: 20230826
  3. PARACETAMOL QUALIGEN [Concomitant]
     Indication: Procedural pain
     Dosage: 1 GRAM
     Route: 048
     Dates: start: 20230826

REACTIONS (2)
  - Bicytopenia [Recovered/Resolved]
  - Rash [Recovered/Resolved]

NARRATIVE: CASE EVENT DATE: 20230826
